FAERS Safety Report 11188924 (Version 1)
Quarter: 2015Q2

REPORT INFORMATION
  Report Type: Report from Study
  Country: BR (occurrence: BR)
  Receive Date: 20150615
  Receipt Date: 20150615
  Transmission Date: 20150821
  Serious: Yes (Other)
  Sender: FDA-Public Use
  Company Number: BR-ROCHE-1135176

PATIENT
  Age: 46 Year
  Sex: Female
  Weight: 86 kg

DRUGS (11)
  1. RITUXIMAB [Suspect]
     Active Substance: RITUXIMAB
     Dosage: D1, 2 CYCLE
     Route: 042
     Dates: start: 20120413
  2. CHLOROQUINE [Concomitant]
     Active Substance: CHLOROQUINE\CHLOROQUINE PHOSPHATE
     Indication: IMMUNODEFICIENCY
  3. FUROSEMIDE. [Concomitant]
     Active Substance: FUROSEMIDE
  4. TYLENOL [Concomitant]
     Active Substance: ACETAMINOPHEN
     Indication: PAIN
     Route: 065
  5. DORFLEX [Concomitant]
     Active Substance: CAFFEINE\DIPYRONE\ORPHENADRINE
     Indication: PAIN
     Route: 065
  6. SERTRALINE [Concomitant]
     Active Substance: SERTRALINE HYDROCHLORIDE
  7. RITUXIMAB [Suspect]
     Active Substance: RITUXIMAB
     Indication: AUTOIMMUNE DISORDER
     Dosage: D1, 1 CYCLE
     Route: 042
     Dates: start: 20111108
  8. RITUXIMAB [Suspect]
     Active Substance: RITUXIMAB
     Dosage: D15, 1 CYCLE
     Route: 042
     Dates: start: 20111125
  9. RITUXIMAB [Suspect]
     Active Substance: RITUXIMAB
     Dosage: D15, 2 CYCLE
     Route: 042
     Dates: start: 20120427
  10. RIVOTRIL [Concomitant]
     Active Substance: CLONAZEPAM
  11. VENLAFAXINE [Concomitant]
     Active Substance: VENLAFAXINE HYDROCHLORIDE

REACTIONS (13)
  - Malaise [Unknown]
  - Headache [Unknown]
  - Dizziness [Unknown]
  - Bone pain [Not Recovered/Not Resolved]
  - Pain [Not Recovered/Not Resolved]
  - Weight increased [Recovering/Resolving]
  - Asthenia [Not Recovered/Not Resolved]
  - Red blood cell count decreased [Not Recovered/Not Resolved]
  - Nasopharyngitis [Unknown]
  - Spinal disorder [Not Recovered/Not Resolved]
  - Syncope [Recovered/Resolved]
  - Cyst [Not Recovered/Not Resolved]
  - Fatigue [Not Recovered/Not Resolved]

NARRATIVE: CASE EVENT DATE: 20150610
